FAERS Safety Report 14186316 (Version 5)
Quarter: 2020Q1

REPORT INFORMATION
  Report Type: Report from Study
  Country: CA (occurrence: CA)
  Receive Date: 20171114
  Receipt Date: 20200317
  Transmission Date: 20200409
  Serious: Yes (Hospitalization, Other)
  Sender: FDA-Public Use
  Company Number: CA-ROCHE-2020855

PATIENT
  Age: 81 Year
  Sex: Female
  Weight: 66.7 kg

DRUGS (39)
  1. ROSUVASTATIN. [Concomitant]
     Active Substance: ROSUVASTATIN
  2. PARIET [Concomitant]
     Active Substance: RABEPRAZOLE SODIUM
  3. PNEUMOVAX 23 [Concomitant]
     Active Substance: PNEUMOCOCCAL VACCINE, POLYVALENT 23
     Dosage: 0.5 ML
     Route: 065
     Dates: start: 20181030
  4. CALCIUM [Concomitant]
     Active Substance: CALCIUM
  5. ACTEMRA [Suspect]
     Active Substance: TOCILIZUMAB
     Route: 042
     Dates: start: 20110816, end: 20150727
  6. DEXILANT [Concomitant]
     Active Substance: DEXLANSOPRAZOLE
     Route: 065
  7. PREGABALIN. [Concomitant]
     Active Substance: PREGABALIN
     Route: 065
     Dates: start: 20180928
  8. QUININE [Concomitant]
     Active Substance: QUININE
     Route: 065
     Dates: start: 20181026
  9. OXEZE [Concomitant]
     Active Substance: FORMOTEROL FUMARATE
     Route: 065
     Dates: start: 20180926
  10. NYSTATIN. [Concomitant]
     Active Substance: NYSTATIN
     Route: 065
     Dates: start: 20180717
  11. ACTEMRA [Suspect]
     Active Substance: TOCILIZUMAB
     Indication: RHEUMATOID ARTHRITIS
     Route: 042
     Dates: start: 20110602, end: 20110714
  12. PLAQUENIL [Concomitant]
     Active Substance: HYDROXYCHLOROQUINE SULFATE
  13. PRIMROSE [Concomitant]
  14. LINCTUS CODEINE [Concomitant]
     Active Substance: CODEINE PHOSPHATE
     Dosage: 10MG/5ML
     Route: 065
     Dates: start: 20181108
  15. VIT D [Concomitant]
     Active Substance: VITAMIN D NOS
  16. ACTEMRA [Suspect]
     Active Substance: TOCILIZUMAB
     Route: 042
     Dates: start: 2015, end: 20200130
  17. NITRO [GLYCERYL TRINITRATE] [Concomitant]
     Active Substance: NITROGLYCERIN
     Route: 065
  18. CELEBREX [Concomitant]
     Active Substance: CELECOXIB
  19. MYCOPHENOLATE MOFETIL SANDOZ [Concomitant]
     Active Substance: MYCOPHENOLATE MOFETIL
     Route: 065
     Dates: start: 20180926
  20. PREGABALIN. [Concomitant]
     Active Substance: PREGABALIN
     Route: 065
     Dates: start: 20181026
  21. SYMBICORT [Concomitant]
     Active Substance: BUDESONIDE\FORMOTEROL FUMARATE DIHYDRATE
  22. DEXILANT [Concomitant]
     Active Substance: DEXLANSOPRAZOLE
     Route: 065
     Dates: start: 20181026
  23. LYRICA [Concomitant]
     Active Substance: PREGABALIN
  24. MYCOPHENOLATE MOFETIL SANDOZ [Concomitant]
     Active Substance: MYCOPHENOLATE MOFETIL
     Route: 065
     Dates: start: 20181026
  25. MYCOPHENOLATE MOFETIL SANDOZ [Concomitant]
     Active Substance: MYCOPHENOLATE MOFETIL
     Route: 065
     Dates: start: 20180726
  26. DOLORAL [Concomitant]
     Indication: PAIN
  27. SALAGEN [Concomitant]
     Active Substance: PILOCARPINE HYDROCHLORIDE
     Route: 065
  28. VENTOLIN [Concomitant]
     Active Substance: ALBUTEROL SULFATE
  29. PREVNAR [Concomitant]
     Active Substance: PNEUMOCOCCAL 7-VALENT CONJUGATE VACCINE (DIPHTHERIA CRM197 PROTEIN)
     Dosage: 0.5 ML
     Route: 065
     Dates: start: 20181030
  30. SULFATRIM [Concomitant]
     Active Substance: SULFAMETHOXAZOLE\TRIMETHOPRIM
     Dosage: 160-800 MG
     Route: 065
     Dates: start: 20181026
  31. PREGABALIN. [Concomitant]
     Active Substance: PREGABALIN
     Route: 065
     Dates: start: 20180726
  32. SPIRIVA [Concomitant]
     Active Substance: TIOTROPIUM BROMIDE MONOHYDRATE
     Route: 065
     Dates: start: 20181026
  33. ACTEMRA [Suspect]
     Active Substance: TOCILIZUMAB
     Route: 042
     Dates: start: 20150824, end: 2015
  34. PREDNISONE. [Concomitant]
     Active Substance: PREDNISONE
     Route: 048
     Dates: start: 20181026
  35. CELECOXIB. [Concomitant]
     Active Substance: CELECOXIB
     Route: 065
     Dates: start: 20181026
  36. VITAMIN C [Concomitant]
     Active Substance: ASCORBIC ACID
  37. XARELTO [Concomitant]
     Active Substance: RIVAROXABAN
     Route: 065
     Dates: start: 20181101
  38. SULFATRIM [Concomitant]
     Active Substance: SULFAMETHOXAZOLE\TRIMETHOPRIM
     Route: 065
     Dates: start: 20180926
  39. CARBOCAL D [Concomitant]
     Active Substance: CALCIUM\VITAMIN D
     Route: 065
     Dates: start: 20181026

REACTIONS (7)
  - Pulmonary fibrosis [Not Recovered/Not Resolved]
  - Bronchitis [Unknown]
  - Fall [Unknown]
  - Pulmonary embolism [Unknown]
  - Tendon rupture [Not Recovered/Not Resolved]
  - Pneumonia [Unknown]
  - Interstitial lung disease [Unknown]

NARRATIVE: CASE EVENT DATE: 20171018
